FAERS Safety Report 7893406-X (Version None)
Quarter: 2011Q4

REPORT INFORMATION
  Report Type: 
  Country: None (occurrence: None)
  Receive Date: 20111104
  Receipt Date: 20111031
  Transmission Date: 20120403
  Serious: Yes (Hospitalization)
  Sender: FDA-Public Use
  Company Number: JP-ABBOTT-11P-087-0870761-00

PATIENT
  Age: 57 Year
  Sex: Female

DRUGS (3)
  1. DASEN [Concomitant]
     Indication: NASOPHARYNGITIS
     Route: 048
     Dates: start: 20100104
  2. CLARITHROMYCIN [Suspect]
     Indication: NASOPHARYNGITIS
     Route: 048
     Dates: start: 20100104
  3. LOXOPROFEN [Concomitant]
     Indication: NASOPHARYNGITIS
     Route: 048
     Dates: start: 20100104

REACTIONS (1)
  - INTERSTITIAL LUNG DISEASE [None]
